FAERS Safety Report 7842677-4 (Version None)
Quarter: 2011Q4

REPORT INFORMATION
  Report Type: 
  Country: None (occurrence: None)
  Receive Date: 20111025
  Receipt Date: 20111012
  Transmission Date: 20120403
  Serious: Yes (Hospitalization, Other)
  Sender: FDA-Public Use
  Company Number: US-BAYER-2011-027467

PATIENT
  Age: 21 Year
  Sex: Female

DRUGS (4)
  1. PERMETHRIN [Concomitant]
     Dosage: UNK
     Dates: start: 20080731
  2. ASCORBIC ACID [Concomitant]
     Dosage: UNK
     Dates: start: 20080731
  3. YAZ [Suspect]
     Indication: CONTRACEPTION
     Dosage: UNK
     Dates: start: 20070101, end: 20100101
  4. OMEPRAZOLE [Concomitant]

REACTIONS (5)
  - ABDOMINAL PAIN UPPER [None]
  - PROCEDURAL PAIN [None]
  - CHOLELITHIASIS [None]
  - CHOLECYSTITIS CHRONIC [None]
  - DIARRHOEA [None]
